FAERS Safety Report 8942367 (Version 3)
Quarter: 2013Q1

REPORT INFORMATION
  Report Type: Spontaneous
  Country: US (occurrence: None)
  Receive Date: 20121121
  Receipt Date: 20121231
  Transmission Date: 20140127
  Serious: Yes (Hospitalization)
  Sender: FDA-Public Use
  Company Number: 2012-004056

PATIENT
  Age: 69 Year
  Sex: Female

DRUGS (7)
  1. ASACOL HD [Suspect]
     Indication: COLITIS MICROSCOPIC
     Dosage: 1600 MG IN A.M. AND 1600 MG IN P.M.
     Route: 048
     Dates: start: 20121105, end: 20121106
  2. OMEPRAZOLE (OMEPRAZOLE0 [Concomitant]
  3. SIMVASTATIN (SIMVASTATIN) [Concomitant]
  4. DIOVAN (VALSARTAN) [Concomitant]
  5. LOVAZA (OMEGA-3 MARINE TRIGLYCERIDES) [Concomitant]
  6. CALCIUM (CALCIUM) [Concomitant]
  7. ASPIRIN (ACETYLSALICYLIC ACID) [Concomitant]

REACTIONS (13)
  - Musculoskeletal stiffness [None]
  - Pyrexia [None]
  - Tremor [None]
  - Chills [None]
  - Constipation [None]
  - Oropharyngeal pain [None]
  - Abdominal pain upper [None]
  - Nausea [None]
  - Diarrhoea [None]
  - Headache [None]
  - Cough [None]
  - Arthralgia [None]
  - Drug hypersensitivity [None]
